FAERS Safety Report 7158657-0 (Version None)
Quarter: 2010Q4

REPORT INFORMATION
  Report Type: 
  Country: None (occurrence: None)
  Receive Date: 20101214
  Receipt Date: 20100621
  Transmission Date: 20110411
  Serious: No
  Sender: FDA-Public Use
  Company Number: US-ASTRAZENECA-2010SE29015

PATIENT
  Age: 85 Year
  Sex: Female
  Weight: 58.1 kg

DRUGS (8)
  1. CRESTOR [Suspect]
     Indication: BLOOD CHOLESTEROL INCREASED
     Route: 048
     Dates: start: 20100501
  2. PLAVIX [Concomitant]
  3. FOLIC ACID [Concomitant]
  4. DIOVAN [Concomitant]
  5. ATENOLOL [Concomitant]
  6. DIURETIC [Concomitant]
  7. POTASSIUM CL [Concomitant]
  8. BETHANECHOL [Concomitant]

REACTIONS (2)
  - BURNING SENSATION [None]
  - DRUG DOSE OMISSION [None]
